FAERS Safety Report 17157400 (Version 9)
Quarter: 2020Q3

REPORT INFORMATION
  Report Type: Report from Study
  Country: CO (occurrence: CO)
  Receive Date: 20191216
  Receipt Date: 20200923
  Transmission Date: 20201102
  Serious: Yes (Hospitalization, Disabling, Other)
  Sender: FDA-Public Use
  Company Number: NVSC2019CO070108

PATIENT
  Age: 40 Year
  Sex: Male
  Weight: 77 kg

DRUGS (5)
  1. COSENTYX [Suspect]
     Active Substance: SECUKINUMAB
     Dosage: UNK
     Route: 065
     Dates: start: 20181217
  2. COSENTYX [Suspect]
     Active Substance: SECUKINUMAB
     Dosage: 150 MG, QMO
     Route: 058
     Dates: start: 201909, end: 20191112
  3. SULFASALAZINE. [Concomitant]
     Active Substance: SULFASALAZINE
     Indication: ANKYLOSING SPONDYLITIS
     Dosage: UNK (EVERY 8 HOURS)
     Route: 048
  4. COSENTYX [Suspect]
     Active Substance: SECUKINUMAB
     Indication: ANKYLOSING SPONDYLITIS
     Dosage: 150 MG, QMO
     Route: 058
     Dates: start: 20180920, end: 201908
  5. COSENTYX [Suspect]
     Active Substance: SECUKINUMAB
     Dosage: 150 MG
     Route: 058
     Dates: start: 201809

REACTIONS (18)
  - Pustule [Not Recovered/Not Resolved]
  - Thrombosis [Not Recovered/Not Resolved]
  - Arthritis [Unknown]
  - Pain [Not Recovered/Not Resolved]
  - Arthralgia [Unknown]
  - Product dose omission issue [Unknown]
  - Skin infection [Recovering/Resolving]
  - Decreased immune responsiveness [Unknown]
  - Abdominal infection [Recovering/Resolving]
  - Soft tissue infection [Recovering/Resolving]
  - Wound [Recovering/Resolving]
  - Localised infection [Unknown]
  - Asthenia [Unknown]
  - Fatigue [Unknown]
  - Contusion [Not Recovered/Not Resolved]
  - Drug ineffective [Unknown]
  - Varicose vein [Unknown]
  - Feeling abnormal [Unknown]

NARRATIVE: CASE EVENT DATE: 2018
